FAERS Safety Report 11380074 (Version 3)
Quarter: 2015Q3

REPORT INFORMATION
  Report Type: Report from Study
  Country: FR (occurrence: FR)
  Receive Date: 20150814
  Receipt Date: 20150824
  Transmission Date: 20151125
  Serious: Yes (Death, Other)
  Sender: FDA-Public Use
  Company Number: PHHY2015FR098138

PATIENT
  Sex: Female

DRUGS (2)
  1. LDK378 [Suspect]
     Active Substance: CERITINIB
     Dosage: 600 MG, QD
     Route: 065
     Dates: start: 201505, end: 20150528
  2. LDK378 [Suspect]
     Active Substance: CERITINIB
     Indication: NON-SMALL CELL LUNG CANCER METASTATIC
     Dosage: 750 MG, QD
     Dates: start: 20150116, end: 201505

REACTIONS (4)
  - Malignant neoplasm progression [Unknown]
  - Pyelonephritis [Fatal]
  - Non-small cell lung cancer [Unknown]
  - Failure to thrive [Fatal]
